FAERS Safety Report 23526652 (Version 1)
Quarter: 2024Q1

REPORT INFORMATION
  Report Type: Spontaneous
  Country: US (occurrence: None)
  Receive Date: 20240215
  Receipt Date: 20240215
  Transmission Date: 20240410
  Serious: Yes (Hospitalization)
  Sender: FDA-Public Use
  Company Number: US-ROCHE-3507151

PATIENT
  Age: 46 Year
  Sex: Female
  Weight: 77.18 kg

DRUGS (2)
  1. XOLAIR [Suspect]
     Active Substance: OMALIZUMAB
     Indication: Idiopathic urticaria
     Dosage: ONE INJECTION INTO EACH ARM
     Route: 058
     Dates: start: 202102
  2. METOPROLOL [Concomitant]
     Active Substance: METOPROLOL
     Indication: Blood pressure measurement

REACTIONS (23)
  - Cardiac disorder [Recovering/Resolving]
  - Atrial fibrillation [Recovering/Resolving]
  - Condition aggravated [Recovered/Resolved]
  - Movement disorder [Recovered/Resolved]
  - Asthenia [Recovered/Resolved]
  - Chest discomfort [Recovered/Resolved]
  - Chest pain [Recovered/Resolved]
  - Pain in extremity [Recovered/Resolved]
  - Musculoskeletal stiffness [Recovered/Resolved]
  - Pain in extremity [Recovered/Resolved]
  - Thermal burn [Not Recovered/Not Resolved]
  - Heart rate increased [Recovering/Resolving]
  - Cardiac disorder [Recovering/Resolving]
  - Pain [Recovered/Resolved]
  - Peripheral swelling [Recovered/Resolved]
  - Joint stiffness [Recovered/Resolved]
  - Thermal burn [Recovered/Resolved]
  - Muscular weakness [Recovered/Resolved]
  - Peripheral swelling [Recovered/Resolved]
  - Joint swelling [Recovered/Resolved]
  - Asthenia [Recovered/Resolved]
  - Pruritus [Recovered/Resolved]
  - Burning sensation [Recovered/Resolved]

NARRATIVE: CASE EVENT DATE: 20221201
